FAERS Safety Report 5415231-1 (Version None)
Quarter: 2007Q3

REPORT INFORMATION
  Report Type: 
  Country: None (occurrence: None)
  Receive Date: 20070813
  Receipt Date: 20070712
  Transmission Date: 20080115
  Serious: Yes (Other)
  Sender: FDA-Public Use
  Company Number: 2006RR-03225

PATIENT
  Age: 49 Year
  Sex: Male

DRUGS (1)
  1. RANITIDINE [Suspect]
     Dosage: 50 MG, TID, INTRAVENOUS; 150 MG, BID
     Route: 042

REACTIONS (3)
  - ANGIOEDEMA [None]
  - DERMATITIS ALLERGIC [None]
  - SKIN TEST POSITIVE [None]
